FAERS Safety Report 6649050-5 (Version None)
Quarter: 2010Q1

REPORT INFORMATION
  Report Type: 
  Country: None (occurrence: None)
  Receive Date: 20100319
  Receipt Date: 20100308
  Transmission Date: 20100710
  Serious: Yes (Hospitalization)
  Sender: FDA-Public Use
  Company Number: 008428

PATIENT
  Age: 49 Year
  Sex: Female

DRUGS (1)
  1. KEPPRA [Suspect]
     Dosage: 500 MG BID ORAL
     Route: 048
     Dates: start: 20091123, end: 20091228

REACTIONS (6)
  - LYMPHOPENIA [None]
  - NEUTROPENIA [None]
  - PSYCHOMOTOR SKILLS IMPAIRED [None]
  - PYREXIA [None]
  - RED BLOOD CELL COUNT DECREASED [None]
  - WHITE BLOOD CELL COUNT DECREASED [None]
